FAERS Safety Report 8934226 (Version 1)
Quarter: 2012Q4

REPORT INFORMATION
  Report Type: 
  Country: AU (occurrence: AU)
  Receive Date: 20121129
  Receipt Date: 20121129
  Transmission Date: 20130627
  Serious: Yes (Disabling)
  Sender: FDA-Public Use
  Company Number: AU-BAXTER-2012BAX024690

PATIENT
  Age: 81 Year
  Sex: Male

DRUGS (2)
  1. KIOVIG NORMAL IMMUNOGLOBULIN (HUMAN) 10G/100ML FOR INTRAVENOUS USE INJ [Suspect]
     Indication: CIDP
     Route: 042
     Dates: start: 20120908, end: 20121103
  2. KIOVIG NORMAL IMMUNOGLOBULIN (HUMAN) 10G/100ML FOR INTRAVENOUS USE INJ [Suspect]
     Indication: INTENTIONAL USE FOR UNLABELED INDICATION

REACTIONS (2)
  - Peroneal nerve palsy [Not Recovered/Not Resolved]
  - Coordination abnormal [Not Recovered/Not Resolved]
